FAERS Safety Report 9454107 (Version 3)
Quarter: 2013Q4

REPORT INFORMATION
  Report Type: Spontaneous
  Country: US (occurrence: None)
  Receive Date: 20130807
  Receipt Date: 20131227
  Transmission Date: 20140711
  Serious: Yes (Hospitalization, Congenital Anomaly)
  Sender: FDA-Public Use
  Company Number: SYM-2013-07589

PATIENT
  Age: 0 Day
  Sex: Male

DRUGS (1)
  1. WELLBUTRIN XL [Suspect]
     Indication: PRODUCT USED FOR UNKNOWN INDICATION
     Dosage: EVERY MORNING
     Route: 064
     Dates: start: 20070518

REACTIONS (9)
  - Ventricular septal defect [None]
  - Patent ductus arteriosus [None]
  - Atrial septal defect [None]
  - Maternal drugs affecting foetus [None]
  - Congenital hand malformation [None]
  - Hypospadias [None]
  - Renal hypoplasia [None]
  - Congenital cystic kidney disease [None]
  - Eyelid ptosis congenital [None]
